FAERS Safety Report 7900384-3 (Version None)
Quarter: 2011Q4

REPORT INFORMATION
  Report Type: 
  Country: None (occurrence: None)
  Receive Date: 20111108
  Receipt Date: 20111103
  Transmission Date: 20120403
  Serious: Yes (Other)
  Sender: FDA-Public Use
  Company Number: US-PFIZER INC-2011269917

PATIENT
  Sex: Female
  Weight: 58.957 kg

DRUGS (7)
  1. RANITIDINE [Concomitant]
     Dosage: 150 MG, 2X/DAY
  2. BUPROPION [Concomitant]
     Dosage: 300 MG, 1X/DAY
  3. TOPIRAMATE [Concomitant]
     Dosage: 50 MG, 2X/DAY
  4. LEVOTHYROXINE [Concomitant]
     Dosage: 125 UG, 1X/DAY
  5. NADOLOL [Concomitant]
     Dosage: 80 MG, 1X/DAY
  6. DICYCLOMINE [Concomitant]
     Dosage: 20 MG, 3X/DAY
  7. NEURONTIN [Suspect]
     Indication: FIBROMYALGIA
     Dosage: 800 MG, 4X/DAY
     Route: 048

REACTIONS (1)
  - COORDINATION ABNORMAL [None]
